FAERS Safety Report 6978930-6 (Version None)
Quarter: 2010Q3

REPORT INFORMATION
  Report Type: 
  Country: None (occurrence: None)
  Receive Date: 20100913
  Receipt Date: 20100903
  Transmission Date: 20110219
  Serious: Yes (Hospitalization, Other)
  Sender: FDA-Public Use
  Company Number: US-ABBOTT-10P-163-0668944-00

PATIENT
  Sex: Male
  Weight: 74.91 kg

DRUGS (11)
  1. HUMIRA [Suspect]
     Indication: RHEUMATOID ARTHRITIS
     Route: 058
     Dates: start: 20090101, end: 20091001
  2. HUMIRA [Suspect]
     Route: 058
     Dates: start: 20100801, end: 20100801
  3. HUMIRA [Suspect]
     Route: 058
     Dates: start: 20100907
  4. PROBIOTIC [Concomitant]
     Indication: COLITIS ULCERATIVE
  5. KLOR-CON [Concomitant]
     Indication: MINERAL SUPPLEMENTATION
  6. FLUDROCORTISONE [Concomitant]
     Indication: COLITIS ULCERATIVE
  7. TEMAZEPAM [Concomitant]
     Indication: INSOMNIA
  8. LONOX [Concomitant]
     Indication: DIARRHOEA
     Dosage: AFTER SUPPER
  9. LONOX [Concomitant]
     Indication: COLITIS ULCERATIVE
  10. IMODIUM [Concomitant]
     Indication: DIARRHOEA
  11. PANTOPRAZOLE [Concomitant]
     Indication: GASTROOESOPHAGEAL REFLUX DISEASE

REACTIONS (9)
  - ABSCESS [None]
  - DEHYDRATION [None]
  - GASTROINTESTINAL INFECTION [None]
  - HYPOTENSION [None]
  - INGROWING NAIL [None]
  - PERITONITIS [None]
  - PNEUMONIA [None]
  - SMALL INTESTINAL PERFORATION [None]
  - WEIGHT DECREASED [None]
